FAERS Safety Report 20773586 (Version 2)
Quarter: 2022Q2

REPORT INFORMATION
  Report Type: Report from Study
  Country: EG (occurrence: EG)
  Receive Date: 20220502
  Receipt Date: 20220516
  Transmission Date: 20220721
  Serious: Yes (Other)
  Sender: FDA-Public Use
  Company Number: EG-NOVARTISPH-NVSC2022EG100237

PATIENT
  Sex: Male

DRUGS (12)
  1. XOLAIR [Suspect]
     Active Substance: OMALIZUMAB
     Indication: Urticaria chronic
     Dosage: 2 DOSAGE FORM, QMO
     Route: 065
     Dates: start: 2012
  2. VOLTAREN [Suspect]
     Active Substance: DICLOFENAC SODIUM
     Indication: Intervertebral disc protrusion
     Dosage: 1 DOSAGE FORM, QW (SIX WEEKS WHEN NEEDED)
     Route: 065
  3. VOLTAREN [Suspect]
     Active Substance: DICLOFENAC SODIUM
     Indication: Muscle spasms
  4. ZYRTEC [Concomitant]
     Active Substance: CETIRIZINE HYDROCHLORIDE
     Indication: Urticaria
     Dosage: TWO TABLETS THREE TIMES DAILY THEN REDUCED TO TWO TABLETS TWO TIMES DAILY
     Route: 048
     Dates: start: 2013
  5. ATARAX [Concomitant]
     Active Substance: HYDROXYZINE HYDROCHLORIDE
     Indication: Urticaria
     Dosage: TWO TABLETS THREE TIMES DAILY THEN REDUCED TO TWO TABLETS TWO TIMES DAILY
     Route: 048
     Dates: start: 2003, end: 2013
  6. PHENADONE [Concomitant]
     Indication: Urticaria
     Dosage: 5CM DAILY FOR 4 DAYS THEN 5CM DAY BY DAY (COURSE FOR A WEEK)
     Route: 065
     Dates: start: 2003
  7. CORTISONE [Concomitant]
     Active Substance: CORTISONE
     Indication: Urticaria
     Dosage: ONE INJECTION ONCE, (SHORT ACTING (WHEN NEEDED))
     Route: 065
     Dates: end: 202203
  8. CORTISONE [Concomitant]
     Active Substance: CORTISONE
     Indication: Intervertebral disc protrusion
     Dosage: ONE INJECTION ONCE, (LONG ACTING (WHEN NEEDED))
     Route: 065
  9. CORTISONE [Concomitant]
     Active Substance: CORTISONE
     Indication: Muscle spasms
  10. FELDENE [Concomitant]
     Active Substance: PIROXICAM
     Indication: Antiinflammatory therapy
     Dosage: ONE INJECTION WEEKLY IN WINTER
     Route: 065
  11. FELDENE [Concomitant]
     Active Substance: PIROXICAM
     Indication: Analgesic therapy
  12. CONTROLOC [Concomitant]
     Active Substance: PANTOPRAZOLE SODIUM
     Indication: Gastric ulcer
     Dosage: 1 DOSAGE FORM, QD
     Route: 048
     Dates: start: 2003

REACTIONS (5)
  - Gastric ulcer [Recovering/Resolving]
  - Neuritis [Recovered/Resolved]
  - Muscle disorder [Not Recovered/Not Resolved]
  - Urticaria [Recovered/Resolved]
  - Product dose omission issue [Recovered/Resolved]

NARRATIVE: CASE EVENT DATE: 20180101
